FAERS Safety Report 5367106-4 (Version None)
Quarter: 2007Q2

REPORT INFORMATION
  Report Type: 
  Country: None (occurrence: None)
  Receive Date: 20070622
  Receipt Date: 20060515
  Transmission Date: 20071010
  Serious: No
  Sender: FDA-Public Use
  Company Number: US-BRISTOL-MYERS SQUIBB COMPANY-13377353

PATIENT
  Age: 50 Year
  Sex: Female
  Weight: 73 kg

DRUGS (4)
  1. SINEMET [Suspect]
     Indication: RESTLESS LEGS SYNDROME
  2. NEURONTIN [Suspect]
     Indication: RESTLESS LEGS SYNDROME
  3. LUNESTA [Suspect]
     Indication: INSOMNIA
     Route: 048
     Dates: start: 20050101
  4. CENESTIN [Concomitant]

REACTIONS (3)
  - DRUG INEFFECTIVE [None]
  - MIDDLE INSOMNIA [None]
  - RESTLESS LEGS SYNDROME [None]
